FAERS Safety Report 5220882-3 (Version None)
Quarter: 2007Q1

REPORT INFORMATION
  Report Type: 
  Country: None (occurrence: None)
  Receive Date: 20070126
  Receipt Date: 20070118
  Transmission Date: 20070707
  Serious: Yes (Hospitalization)
  Sender: FDA-Public Use
  Company Number: 6483

PATIENT
  Age: 59 Year
  Sex: Male

DRUGS (1)
  1. NOGITECAN HYDROCHLORIDE [Suspect]
     Indication: SMALL CELL LUNG CANCER STAGE UNSPECIFIED
     Route: 042

REACTIONS (1)
  - INTERSTITIAL LUNG DISEASE [None]
